FAERS Safety Report 8589902 (Version 3)
Quarter: 2013Q4

REPORT INFORMATION
  Report Type: Spontaneous
  Country: US (occurrence: US)
  Receive Date: 20120601
  Receipt Date: 20131203
  Transmission Date: 20140711
  Serious: Yes (Other)
  Sender: FDA-Public Use
  Company Number: US-ASTRAZENECA-2012SE34458

PATIENT
  Age: 44 Year
  Sex: Female

DRUGS (27)
  1. NEXIUM [Suspect]
     Indication: GASTROOESOPHAGEAL REFLUX DISEASE
     Route: 048
     Dates: start: 1987
  2. NEXIUM [Suspect]
     Indication: GASTROOESOPHAGEAL REFLUX DISEASE
     Route: 048
     Dates: start: 20020624
  3. NEXIUM [Suspect]
     Indication: GASTROOESOPHAGEAL REFLUX DISEASE
     Route: 048
     Dates: start: 20050504
  4. PRILOSEC [Suspect]
     Route: 048
     Dates: start: 20000810
  5. ACIPHEX [Concomitant]
  6. PROTONIX [Concomitant]
  7. PREVACID [Concomitant]
     Dates: start: 20041028
  8. PEPCID [Concomitant]
  9. DIOVAN [Concomitant]
     Indication: BLOOD PRESSURE ABNORMAL
  10. NORVAC [Concomitant]
     Indication: BLOOD PRESSURE ABNORMAL
  11. CRESTOR [Concomitant]
     Indication: BLOOD CHOLESTEROL ABNORMAL
     Route: 048
  12. CEFTIN [Concomitant]
     Dates: start: 19990310
  13. TRIHIST [Concomitant]
     Dates: start: 19990310
  14. CLIDINIUM [Concomitant]
     Dates: start: 19990508
  15. LEVAQUIN [Concomitant]
     Dates: start: 19990524
  16. HYDROCODONE/APAP [Concomitant]
     Dosage: 7.5/650 MG
     Dates: start: 19990707
  17. CEFADROXIL [Concomitant]
     Dates: start: 20000313
  18. CIPRO [Concomitant]
     Dates: start: 20000810
  19. SUCRALFATE [Concomitant]
     Dates: start: 20000810
  20. VIOXX [Concomitant]
     Dates: start: 20001005
  21. METHOCARBAMOL [Concomitant]
     Dates: start: 20001016
  22. CLORAZEPATE [Concomitant]
     Dates: start: 20010116
  23. TEQUIN [Concomitant]
     Dates: start: 20010201
  24. PROMETHAZINE [Concomitant]
     Dates: start: 20010430
  25. CELEBREX [Concomitant]
     Dates: start: 20030819
  26. FAMOTIDINE [Concomitant]
     Dates: start: 20040409
  27. DIOVAN HCT [Concomitant]
     Dosage: 160/12.5 MG
     Dates: start: 20040824

REACTIONS (7)
  - Intervertebral disc protrusion [Unknown]
  - Osteoporosis [Unknown]
  - Arthritis [Unknown]
  - Multiple fractures [Unknown]
  - Diabetes mellitus [Unknown]
  - Osteoarthritis [Unknown]
  - Depression [Unknown]
